FAERS Safety Report 24299266 (Version 1)
Quarter: 2024Q3

REPORT INFORMATION
  Report Type: Spontaneous
  Country: US (occurrence: US)
  Receive Date: 20240909
  Receipt Date: 20240909
  Transmission Date: 20241017
  Serious: Yes (Hospitalization, Other)
  Sender: INCYTE
  Company Number: US-INCYTE CORPORATION-2024IN009398

PATIENT

DRUGS (2)
  1. JAKAFI [Suspect]
     Active Substance: RUXOLITINIB
     Indication: Chronic myelomonocytic leukaemia
     Dosage: 10MG EVERY EVENING, 5MG EVERY MORNING
     Route: 048
     Dates: start: 20240808
  2. JAKAFI [Suspect]
     Active Substance: RUXOLITINIB
     Dosage: 10MG EVERY EVENING, 5MG EVERY MORNING
     Route: 048
     Dates: start: 20240905

REACTIONS (3)
  - Septic shock [Not Recovered/Not Resolved]
  - Asthenia [Not Recovered/Not Resolved]
  - Off label use [Unknown]

NARRATIVE: CASE EVENT DATE: 20240808
